FAERS Safety Report 7944765-0 (Version None)
Quarter: 2011Q4

REPORT INFORMATION
  Report Type: 
  Country: None (occurrence: None)
  Receive Date: 20111129
  Receipt Date: 20111123
  Transmission Date: 20120403
  Serious: Yes (Death, Other)
  Sender: FDA-Public Use
  Company Number: SE-PFIZER INC-2011287300

PATIENT
  Age: 49 Year
  Sex: Male
  Weight: 43 kg

DRUGS (11)
  1. ASPIRIN [Concomitant]
     Dosage: UNK
     Route: 048
     Dates: start: 20090130
  2. FOLIC ACID [Concomitant]
     Dosage: UNK
     Dates: start: 20011204
  3. SOMATROPIN [Suspect]
     Indication: HYPOPITUITARISM
     Dosage: 0.4 MG/24H, 7 INJECTIONS/WEEK
     Dates: start: 19960821
  4. LEVOTHYROXINE [Concomitant]
     Indication: BLOOD THYROID STIMULATING HORMONE DECREASED
     Dosage: UNK
     Route: 048
     Dates: start: 20090130
  5. ACETAMINOPHEN [Concomitant]
     Dosage: UNK
     Route: 048
     Dates: start: 20090130
  6. LEVOTHYROXINE [Concomitant]
     Indication: PRIMARY HYPOTHYROIDISM
  7. FOLIC ACID [Concomitant]
     Indication: ANAEMIA
     Dosage: UNK
     Dates: start: 19910301
  8. HYDROCORTISONE [Concomitant]
     Indication: ANAEMIA
     Dosage: UNK
     Route: 048
     Dates: start: 20090415
  9. TEGRETOL [Concomitant]
     Dosage: UNK
     Route: 048
     Dates: start: 20090304
  10. ERGOCALCIFEROL [Concomitant]
     Indication: VITAMIN D DEFICIENCY
     Dosage: UNK
     Dates: start: 19940701
  11. CYANOCOBALAMIN [Concomitant]
     Indication: ANAEMIA
     Dosage: UNK
     Dates: start: 19910501

REACTIONS (3)
  - DEATH [None]
  - LOSS OF CONSCIOUSNESS [None]
  - BLOOD PRESSURE DECREASED [None]
